FAERS Safety Report 8438534-5 (Version None)
Quarter: 2012Q2

REPORT INFORMATION
  Report Type: 
  Country: None (occurrence: None)
  Receive Date: 20120615
  Receipt Date: 20120607
  Transmission Date: 20120825
  Serious: No
  Sender: FDA-Public Use
  Company Number: US-BIOGENIDEC-2012BI020130

PATIENT
  Sex: Female

DRUGS (3)
  1. AVONEX [Suspect]
     Indication: MULTIPLE SCLEROSIS
     Route: 030
     Dates: start: 20100622, end: 20110708
  2. GILENYA [Concomitant]
     Dates: start: 20110701, end: 20120522
  3. AVONEX [Suspect]
     Route: 030
     Dates: start: 20120522

REACTIONS (4)
  - MULTIPLE SCLEROSIS RELAPSE [None]
  - AMNESIA [None]
  - COGNITIVE DISORDER [None]
  - MEMORY IMPAIRMENT [None]
